FAERS Safety Report 5708765-3 (Version None)
Quarter: 2008Q2

REPORT INFORMATION
  Report Type: 
  Country: None (occurrence: None)
  Receive Date: 20080416
  Receipt Date: 20080403
  Transmission Date: 20081010
  Serious: Yes (Hospitalization)
  Sender: FDA-Public Use
  Company Number: 2008BI009081

PATIENT
  Age: 28 Year
  Sex: Female
  Weight: 77.1115 kg

DRUGS (7)
  1. TYSABRI [Suspect]
     Indication: MULTIPLE SCLEROSIS
     Dosage: 300 MG;QM;IV
     Route: 042
     Dates: start: 20071107, end: 20080227
  2. HEPARIN [Concomitant]
  3. EMPRACET [Concomitant]
  4. SERAX [Concomitant]
  5. NEXIUM [Concomitant]
  6. IMOVANE [Concomitant]
  7. SOLU-MEDROL [Concomitant]

REACTIONS (5)
  - CYST [None]
  - GUILLAIN-BARRE SYNDROME [None]
  - MULTIPLE SCLEROSIS RELAPSE [None]
  - OEDEMA MUCOSAL [None]
  - PITUITARY CYST [None]
